FAERS Safety Report 6169168-3 (Version None)
Quarter: 2009Q2

REPORT INFORMATION
  Report Type: 
  Country: None (occurrence: None)
  Receive Date: 20090427
  Receipt Date: 20090420
  Transmission Date: 20091009
  Serious: Yes (Death, Other)
  Sender: FDA-Public Use
  Company Number: CI-B.I. PHARMACEUTICALS,INC./RIDGEFIELD-2009-DE-03229GD

PATIENT
  Sex: Male

DRUGS (6)
  1. NEVIRAPINE [Suspect]
     Indication: PROPHYLAXIS
     Dosage: 2 MG/KG
  2. NEVIRAPINE [Suspect]
     Indication: HUMAN IMMUNODEFICIENCY VIRUS TRANSMISSION
     Route: 064
  3. ZIDOVUDINE [Suspect]
     Indication: PROPHYLAXIS
     Dosage: 8 MG/KG
     Route: 048
  4. ZIDOVUDINE [Suspect]
     Indication: HUMAN IMMUNODEFICIENCY VIRUS TRANSMISSION
     Route: 064
  5. TRUVADA [Suspect]
     Indication: PROPHYLAXIS
     Route: 063
  6. TRUVADA [Suspect]
     Indication: HUMAN IMMUNODEFICIENCY VIRUS TRANSMISSION

REACTIONS (4)
  - DEATH [None]
  - DYSPNOEA [None]
  - LARYNGOMALACIA [None]
  - NEUROLOGICAL SYMPTOM [None]
